FAERS Safety Report 18920611 (Version 1)
Quarter: 2021Q1

REPORT INFORMATION
  Report Type: Report from Study
  Country: AU (occurrence: AU)
  Receive Date: 20210222
  Receipt Date: 20210222
  Transmission Date: 20210420
  Serious: Yes (Other)
  Sender: FDA-Public Use
  Company Number: AU-REGENERON PHARMACEUTICALS, INC.-2021-23251

PATIENT

DRUGS (1)
  1. EYLEA [Suspect]
     Active Substance: AFLIBERCEPT
     Indication: DIABETIC RETINAL OEDEMA
     Dosage: INTRAVITREAL INJECTION TO BOTH EYES

REACTIONS (2)
  - Dialysis [Recovering/Resolving]
  - Adverse event [Unknown]

NARRATIVE: CASE EVENT DATE: 202011
